FAERS Safety Report 24728710 (Version 3)
Quarter: 2025Q2

REPORT INFORMATION
  Report Type: Report from Study
  Country: JP (occurrence: JP)
  Receive Date: 20241212
  Receipt Date: 20250401
  Transmission Date: 20250716
  Serious: No
  Sender: TAKEDA
  Company Number: None

PATIENT
  Age: 11 Year
  Sex: Male
  Weight: 51.9 kg

DRUGS (17)
  1. LISDEXAMFETAMINE DIMESYLATE [Suspect]
     Active Substance: LISDEXAMFETAMINE DIMESYLATE
     Indication: Attention deficit hyperactivity disorder
     Dosage: 30 MILLIGRAM, QD
     Dates: start: 20210614, end: 20210801
  2. LISDEXAMFETAMINE DIMESYLATE [Suspect]
     Active Substance: LISDEXAMFETAMINE DIMESYLATE
     Dosage: 40 MILLIGRAM, QD
     Dates: start: 20210802, end: 20211213
  3. LISDEXAMFETAMINE DIMESYLATE [Suspect]
     Active Substance: LISDEXAMFETAMINE DIMESYLATE
     Dosage: 50 MILLIGRAM, QD
     Dates: start: 20211214, end: 20220207
  4. LISDEXAMFETAMINE DIMESYLATE [Suspect]
     Active Substance: LISDEXAMFETAMINE DIMESYLATE
     Dosage: 40 MILLIGRAM, QD
     Dates: start: 20220208, end: 20220307
  5. LISDEXAMFETAMINE DIMESYLATE [Suspect]
     Active Substance: LISDEXAMFETAMINE DIMESYLATE
     Dosage: 30 MILLIGRAM, QD
     Dates: start: 20220308, end: 20220524
  6. LISDEXAMFETAMINE DIMESYLATE [Suspect]
     Active Substance: LISDEXAMFETAMINE DIMESYLATE
     Dosage: 40 MILLIGRAM, QD
     Dates: start: 20220525, end: 20230116
  7. LISDEXAMFETAMINE DIMESYLATE [Suspect]
     Active Substance: LISDEXAMFETAMINE DIMESYLATE
     Dosage: 60 MILLIGRAM, QD
     Dates: start: 20230117, end: 20230213
  8. LISDEXAMFETAMINE DIMESYLATE [Suspect]
     Active Substance: LISDEXAMFETAMINE DIMESYLATE
     Dosage: 50 MILLIGRAM, QD
     Dates: start: 20230214, end: 20230515
  9. LISDEXAMFETAMINE DIMESYLATE [Suspect]
     Active Substance: LISDEXAMFETAMINE DIMESYLATE
     Dosage: 30 MILLIGRAM, QD
     Dates: start: 20230516
  10. CONCERTA [Suspect]
     Active Substance: METHYLPHENIDATE HYDROCHLORIDE
     Indication: Attention deficit hyperactivity disorder
     Dates: start: 20210615, end: 20220405
  11. CONCERTA [Suspect]
     Active Substance: METHYLPHENIDATE HYDROCHLORIDE
     Dates: start: 20220406, end: 20220425
  12. CONCERTA [Suspect]
     Active Substance: METHYLPHENIDATE HYDROCHLORIDE
     Dates: start: 20220426, end: 20220524
  13. CONCERTA [Suspect]
     Active Substance: METHYLPHENIDATE HYDROCHLORIDE
  14. HERBALS [Concomitant]
     Active Substance: HERBALS
     Dates: start: 20220405, end: 20220718
  15. HERBALS [Concomitant]
     Active Substance: HERBALS
  16. HERBALS [Concomitant]
     Active Substance: HERBALS
     Dates: start: 20220524, end: 20220718
  17. HERBALS [Concomitant]
     Active Substance: HERBALS

REACTIONS (7)
  - Irritability [Recovering/Resolving]
  - Irritability [Recovering/Resolving]
  - Initial insomnia [Recovering/Resolving]
  - Depression [Recovering/Resolving]
  - Ear pain [Recovering/Resolving]
  - Tinnitus [Recovering/Resolving]
  - Arthritis [Recovering/Resolving]

NARRATIVE: CASE EVENT DATE: 20210921
